FAERS Safety Report 16890790 (Version 1)
Quarter: 2019Q4

REPORT INFORMATION
  Report Type: Spontaneous
  Country: FR (occurrence: FR)
  Receive Date: 20191007
  Receipt Date: 20191007
  Transmission Date: 20200122
  Serious: Yes (Other)
  Sender: FDA-Public Use
  Company Number: FR-PFIZER INC-2019420528

PATIENT
  Age: 69 Year
  Sex: Female

DRUGS (15)
  1. CLINDAMYCIN HCL [Suspect]
     Active Substance: CLINDAMYCIN HYDROCHLORIDE
     Indication: EYE INFECTION TOXOPLASMAL
     Dosage: 600 MG, 3X/DAY
     Route: 048
  2. FOLINIC ACID [Concomitant]
     Active Substance: LEUCOVORIN
     Indication: TOXOPLASMOSIS
  3. PYRIMETHAMINE [Concomitant]
     Active Substance: PYRIMETHAMINE
     Indication: TOXOPLASMOSIS
     Dosage: 50 MG, 1X/DAY
     Route: 048
  4. DEXAMETHASONE. [Concomitant]
     Active Substance: DEXAMETHASONE
     Indication: TOXOPLASMOSIS
     Dosage: UNK
     Route: 048
  5. PYRIMETHAMINE [Concomitant]
     Active Substance: PYRIMETHAMINE
     Indication: EYE INFECTION TOXOPLASMAL
     Dosage: 100 MG, 1X/DAY
     Route: 048
  6. TIMOLOL. [Concomitant]
     Active Substance: TIMOLOL
     Indication: EYE INFECTION TOXOPLASMAL
  7. PREDNISOLONE. [Concomitant]
     Active Substance: PREDNISOLONE
     Dosage: 1 MG/KG, UNK (RE-INCREASED)
     Route: 048
  8. BRINZOLAMIDE [Concomitant]
     Active Substance: BRINZOLAMIDE
     Indication: EYE INFECTION TOXOPLASMAL
     Dosage: UNK
     Route: 061
  9. TIMOLOL. [Concomitant]
     Active Substance: TIMOLOL
     Indication: TOXOPLASMOSIS
     Dosage: UNK
     Route: 048
  10. CLINDAMYCIN HCL [Suspect]
     Active Substance: CLINDAMYCIN HYDROCHLORIDE
     Indication: TOXOPLASMOSIS
  11. BRINZOLAMIDE [Concomitant]
     Active Substance: BRINZOLAMIDE
     Indication: TOXOPLASMOSIS
  12. PREDNISOLONE. [Concomitant]
     Active Substance: PREDNISOLONE
     Indication: TOXOPLASMOSIS
     Dosage: 1 MG/KG, 1X/DAY
     Route: 048
  13. PREDNISOLONE. [Concomitant]
     Active Substance: PREDNISOLONE
     Indication: EYE INFECTION TOXOPLASMAL
     Dosage: PROGRESSIVELY DECREASED
     Route: 048
  14. DEXAMETHASONE. [Concomitant]
     Active Substance: DEXAMETHASONE
     Indication: EYE INFECTION TOXOPLASMAL
  15. FOLINIC ACID [Concomitant]
     Active Substance: LEUCOVORIN
     Indication: EYE INFECTION TOXOPLASMAL
     Dosage: UNK
     Route: 048

REACTIONS (2)
  - Drug intolerance [Unknown]
  - Gastrointestinal disorder [Unknown]
